FAERS Safety Report 6695760-3 (Version None)
Quarter: 2010Q2

REPORT INFORMATION
  Report Type: 
  Country: None (occurrence: None)
  Receive Date: 20100421
  Receipt Date: 20100413
  Transmission Date: 20101027
  Serious: Yes (Other)
  Sender: FDA-Public Use
  Company Number: 560081

PATIENT
  Age: 71 Year
  Sex: Female
  Weight: 61.9 kg

DRUGS (5)
  1. CARBOPLATIN [Suspect]
     Indication: BREAST CANCER
     Dosage: 435 MG, FOR 6 CYCLES OF TCH, INTRAVENOUS
     Route: 042
     Dates: start: 20100409, end: 20100409
  2. (TRASTUZUMAB) [Concomitant]
  3. ZOFRAN [Concomitant]
  4. DECADRON [Concomitant]
  5. DOCETAXEL [Concomitant]

REACTIONS (4)
  - CHEST DISCOMFORT [None]
  - DRUG HYPERSENSITIVITY [None]
  - FLUSHING [None]
  - PO2 DECREASED [None]
